FAERS Safety Report 7568964-5 (Version None)
Quarter: 2011Q2

REPORT INFORMATION
  Report Type: 
  Country: None (occurrence: None)
  Receive Date: 20110623
  Receipt Date: 20110614
  Transmission Date: 20111010
  Serious: Yes (Hospitalization, Other)
  Sender: FDA-Public Use
  Company Number: DE-UCBSA-030907

PATIENT
  Age: 29 Year
  Sex: Female
  Weight: 76 kg

DRUGS (4)
  1. LUMINAL [Concomitant]
     Indication: EPILEPSY
     Dosage: 1-0-1.5
     Route: 048
     Dates: start: 20101101
  2. KEPPRA [Suspect]
     Dosage: 1-0-1
     Route: 048
     Dates: start: 20101101
  3. KEPPRA [Suspect]
     Indication: EPILEPSY
  4. APYDAN [Concomitant]
     Indication: EPILEPSY
     Dosage: 1-0-1-1
     Route: 048
     Dates: start: 20101101

REACTIONS (5)
  - INCREASED APPETITE [None]
  - AGGRESSION [None]
  - RESTLESSNESS [None]
  - SLEEP DISORDER [None]
  - WEIGHT INCREASED [None]
